FAERS Safety Report 4717195-2 (Version None)
Quarter: 2005Q3

REPORT INFORMATION
  Report Type: 
  Country: None (occurrence: None)
  Receive Date: 20050712
  Receipt Date: 20041130
  Transmission Date: 20060218
  Serious: Yes (Other)
  Sender: FDA-Public Use
  Company Number: 2004100276

PATIENT
  Age: 32 Year
  Sex: Female

DRUGS (4)
  1. ACCUPRIL [Suspect]
     Indication: HYPERTENSION
     Dosage: 10 MG (10 MG, 1 IN 1 D), ORAL
     Route: 048
     Dates: start: 20040101, end: 20041129
  2. AMLODIPINE BESYLATE [Concomitant]
  3. CETIRIZINE HYDROCHLORIDE [Concomitant]
  4. ANOVLAR (ETHINYLESTRADIOL, NORETHISTERONE ACETATE) [Concomitant]

REACTIONS (1)
  - ANGIONEUROTIC OEDEMA [None]
